FAERS Safety Report 5187191-2 (Version None)
Quarter: 2006Q4

REPORT INFORMATION
  Report Type: 
  Country: None (occurrence: None)
  Receive Date: 20061214
  Receipt Date: 20061205
  Transmission Date: 20070319
  Serious: Yes (Other)
  Sender: FDA-Public Use
  Company Number: 2006150547

PATIENT

DRUGS (2)
  1. LYRICA [Suspect]
     Dosage: 375 MG
  2. BUPRENORPHINE HCL [Suspect]
     Dosage: 35 MG, TRANSDERMAL
     Route: 062

REACTIONS (1)
  - LOSS OF CONSCIOUSNESS [None]
